FAERS Safety Report 7718392-4 (Version None)
Quarter: 2011Q3

REPORT INFORMATION
  Report Type: 
  Country: None (occurrence: None)
  Receive Date: 20110824
  Receipt Date: 20110812
  Transmission Date: 20111222
  Serious: Yes (Other)
  Sender: FDA-Public Use
  Company Number: GB-ACCORD-008026

PATIENT
  Age: 26 Year
  Sex: Female

DRUGS (1)
  1. SIMVASTATIN [Suspect]
     Dosage: ORAL
     Route: 048

REACTIONS (7)
  - FOETAL DISTRESS SYNDROME [None]
  - HEPATOMEGALY [None]
  - CAESAREAN SECTION [None]
  - LIPIDS INCREASED [None]
  - PREGNANCY [None]
  - ABORTION INDUCED [None]
  - MATERNAL EXPOSURE DURING PREGNANCY [None]
